FAERS Safety Report 20834343 (Version 2)
Quarter: 2022Q3

REPORT INFORMATION
  Report Type: Spontaneous
  Country: BR (occurrence: BR)
  Receive Date: 20220516
  Receipt Date: 20220707
  Transmission Date: 20221027
  Serious: Yes (Other)
  Sender: FDA-Public Use
  Company Number: BR-SA-SAC20220509001223

PATIENT

DRUGS (3)
  1. LARONIDASE [Suspect]
     Active Substance: LARONIDASE
     Indication: Mucopolysaccharidosis I
     Dosage: 20 DF (BOTTLES), QOW
     Route: 041
     Dates: start: 20090101, end: 202106
  2. LARONIDASE [Suspect]
     Active Substance: LARONIDASE
     Dosage: 20 DF (VIALS), QOW
     Route: 041
     Dates: start: 20091001, end: 202106
  3. ACETAMINOPHEN [Concomitant]
     Active Substance: ACETAMINOPHEN
     Indication: Product used for unknown indication
     Dosage: UNK

REACTIONS (19)
  - Glaucoma [Unknown]
  - Drug hypersensitivity [Unknown]
  - Generalised oedema [Unknown]
  - Erythema [Unknown]
  - Pruritus [Unknown]
  - Ear swelling [Unknown]
  - Urticaria [Unknown]
  - Pharyngeal swelling [Unknown]
  - Eye swelling [Unknown]
  - Abdominal pain [Unknown]
  - Ear pain [Unknown]
  - Cardiac valve disease [Unknown]
  - Tooth infection [Unknown]
  - Visual impairment [Unknown]
  - Tooth loss [Unknown]
  - Dyspnoea [Unknown]
  - Product use issue [Unknown]
  - Hernia [Unknown]
  - Arthralgia [Unknown]

NARRATIVE: CASE EVENT DATE: 20090101
